FAERS Safety Report 20339450 (Version 2)
Quarter: 2022Q1

REPORT INFORMATION
  Report Type: Spontaneous
  Country: JP (occurrence: JP)
  Receive Date: 20220117
  Receipt Date: 20220207
  Transmission Date: 20220424
  Serious: No
  Sender: FDA-Public Use
  Company Number: JP-NBI-J202200751BIPI

PATIENT

DRUGS (1)
  1. JARDIANCE [Suspect]
     Active Substance: EMPAGLIFLOZIN
     Indication: Diabetes mellitus
     Route: 065

REACTIONS (5)
  - Urinary tract infection [Unknown]
  - Pollakiuria [Unknown]
  - Rash [Unknown]
  - Urine ketone body [Unknown]
  - Thirst [Unknown]
